FAERS Safety Report 9490393 (Version 1)
Quarter: 2013Q3

REPORT INFORMATION
  Report Type: Spontaneous
  Country: BR (occurrence: BR)
  Receive Date: 20130830
  Receipt Date: 20130830
  Transmission Date: 20140515
  Serious: Yes (Other)
  Sender: FDA-Public Use
  Company Number: BR-BRISTOL-MYERS SQUIBB COMPANY-19205269

PATIENT
  Age: 63 Year
  Sex: Female
  Weight: 98 kg

DRUGS (5)
  1. COUMADIN TABS 5 MG [Suspect]
     Indication: THROMBOSIS
     Dosage: DOSE INCREASED TO 12.5 MG FOR 7 YEARS.
     Route: 048
  2. CRESTOR [Concomitant]
     Indication: BLOOD CHOLESTEROL
  3. EUTHYROX [Concomitant]
     Indication: THYROID DISORDER
  4. OMEPRAZOLE [Concomitant]
  5. DIOSMIN [Concomitant]
     Indication: VASODILATATION

REACTIONS (2)
  - Thrombosis [Recovered/Resolved]
  - Hypercoagulation [Unknown]
